FAERS Safety Report 23326371 (Version 1)
Quarter: 2023Q4

REPORT INFORMATION
  Report Type: Spontaneous
  Country: US (occurrence: US)
  Receive Date: 20231221
  Receipt Date: 20231221
  Transmission Date: 20240110
  Serious: No
  Sender: FDA-Public Use
  Company Number: US-BPL01-004546

PATIENT
  Sex: Female

DRUGS (1)
  1. GAMMAPLEX [Suspect]
     Active Substance: HUMAN IMMUNOGLOBULIN G
     Indication: Paediatric acute-onset neuropsychiatric syndrome
     Dosage: PATIENT WAS PRESCRIBED 75 G TO BE GIVEN OVER 2 DAYS. BUT THE NURSE GAVE 75 GM EACH DAY AND THEREF...
     Route: 042
     Dates: start: 20230922, end: 20230923

REACTIONS (13)
  - Chest pain [Unknown]
  - Off label use [Unknown]
  - Wrong technique in product usage process [Unknown]
  - Mood disorder due to a general medical condition [Unknown]
  - Headache [Recovering/Resolving]
  - Overdose [Unknown]
  - Pain [Unknown]
  - Vomiting [Recovering/Resolving]
  - Nausea [Recovering/Resolving]
  - Neck pain [Unknown]
  - Musculoskeletal stiffness [Unknown]
  - Photophobia [Unknown]
  - Fatigue [Recovering/Resolving]
